FAERS Safety Report 22068336 (Version 1)
Quarter: 2023Q1

REPORT INFORMATION
  Report Type: Other
  Country: EG (occurrence: None)
  Receive Date: 20230307
  Receipt Date: 20230307
  Transmission Date: 20230417
  Serious: No
  Sender: FDA-Public Use
  Company Number: EG-ROCHE-3297295

PATIENT
  Age: 35 Year
  Sex: Female
  Weight: 57 kg

DRUGS (1)
  1. OCREVUS [Suspect]
     Active Substance: OCRELIZUMAB
     Indication: Multiple sclerosis
     Dosage: KNOWN THAT HER LAST OCREVUS DOSE WAS IN 18/AUG/2022.
     Route: 042
     Dates: start: 20210302

REACTIONS (1)
  - Varicella [Not Recovered/Not Resolved]
